FAERS Safety Report 19730196 (Version 1)
Quarter: 2021Q3

REPORT INFORMATION
  Report Type: Report from Study
  Country: IT (occurrence: IT)
  Receive Date: 20210820
  Receipt Date: 20210820
  Transmission Date: 20211014
  Serious: Yes (Hospitalization)
  Sender: FDA-Public Use
  Company Number: IT-TEVA-2021-IT-1943085

PATIENT
  Age: 49 Year
  Sex: Female

DRUGS (2)
  1. ARIPIPRAZOLE. [Suspect]
     Active Substance: ARIPIPRAZOLE
     Dates: start: 20210716, end: 20210716
  2. RESILIENT 83 MG COMPRESSE A RILASCIO PROLUNGATO [Suspect]
     Active Substance: LITHIUM SULFATE
     Dates: start: 20210716, end: 20210716

REACTIONS (1)
  - Bradyphrenia [Unknown]

NARRATIVE: CASE EVENT DATE: 20210716
